FAERS Safety Report 7763782-7 (Version None)
Quarter: 2011Q3

REPORT INFORMATION
  Report Type: 
  Country: None (occurrence: None)
  Receive Date: 20110919
  Receipt Date: 20110909
  Transmission Date: 20111222
  Serious: Yes (Other)
  Sender: FDA-Public Use
  Company Number: 7082093

PATIENT
  Age: 74 Year
  Sex: Female

DRUGS (4)
  1. LEVOTHYROXINE SODIUM [Suspect]
     Indication: MAJOR DEPRESSION
     Dosage: TITRATION TO 300 MCG DAILY
  2. LEVOTHYROXINE SODIUM [Suspect]
     Indication: DRUG RESISTANCE
     Dosage: TITRATION TO 300 MCG DAILY
  3. TRANYLCYPROMINE SULFATE [Suspect]
     Indication: MAJOR DEPRESSION
     Dosage: 60 MG
  4. TRANYLCYPROMINE SULFATE [Suspect]
     Indication: DRUG RESISTANCE
     Dosage: 60 MG

REACTIONS (3)
  - MYOCARDIAL INFARCTION [None]
  - VASOSPASM [None]
  - HYPOXIA [None]
